FAERS Safety Report 9685397 (Version 2)
Quarter: 2013Q4

REPORT INFORMATION
  Report Type: Report from Study
  Country: NZ (occurrence: NZ)
  Receive Date: 20131113
  Receipt Date: 20131113
  Transmission Date: 20140711
  Serious: Yes (Death, Other)
  Sender: FDA-Public Use
  Company Number: PHHY2013NZ095225

PATIENT
  Age: 69 Year
  Sex: Male

DRUGS (9)
  1. CLOZARIL [Suspect]
     Indication: PSYCHOTIC DISORDER
     Dosage: 37.5 MG, NOCTE
     Dates: start: 20120724
  2. CLOZARIL [Suspect]
     Dosage: 12.5 MG, UNK
     Dates: end: 20130818
  3. NITROFURANTOIN [Concomitant]
     Dosage: UNK UKN, UNK
  4. SINEMET [Concomitant]
     Indication: PARKINSON^S DISEASE
     Dosage: UNK UKN, UNK
  5. ASPIRIN [Concomitant]
     Dosage: UNK UKN, UNK
  6. TOLCAPONE [Concomitant]
     Dosage: UNK UKN, UNK
  7. LAXSOL [Concomitant]
     Dosage: UNK UKN, UNK
  8. CITALOPRAM [Concomitant]
     Dosage: UNK UKN, UNK
  9. FLUVAL [Suspect]
     Dosage: 50 MG, UNK

REACTIONS (2)
  - Lower respiratory tract infection [Fatal]
  - Respiratory distress [Unknown]
